FAERS Safety Report 5990653-9 (Version None)
Quarter: 2008Q4

REPORT INFORMATION
  Report Type: 
  Country: None (occurrence: None)
  Receive Date: 20081209
  Receipt Date: 20081126
  Transmission Date: 20090506
  Serious: No
  Sender: FDA-Public Use
  Company Number: US025115

PATIENT
  Sex: Male

DRUGS (3)
  1. FENTORA [Suspect]
     Indication: BACK PAIN
     Dosage: BUCCAL
     Route: 002
  2. ACTIQ [Suspect]
     Indication: BACK PAIN
     Dosage: BUCCAL
     Route: 002
  3. FENTANYL TRANSDERMAL SYSTEM [Concomitant]

REACTIONS (1)
  - DRUG PRESCRIBING ERROR [None]
